FAERS Safety Report 4885900-0 (Version None)
Quarter: 2006Q1

REPORT INFORMATION
  Report Type: 
  Country: None (occurrence: None)
  Receive Date: 20060120
  Receipt Date: 20060109
  Transmission Date: 20060701
  Serious: Yes (Other)
  Sender: FDA-Public Use
  Company Number: SE-AMGEN-UK164194

PATIENT
  Sex: Female

DRUGS (10)
  1. ARANESP [Suspect]
     Indication: ANAEMIA OF MALIGNANT DISEASE
     Route: 058
     Dates: start: 20051105, end: 20051217
  2. OXYNORM [Concomitant]
     Route: 048
  3. TRANEXAMIC ACID [Concomitant]
     Route: 048
  4. FOLACIN [Concomitant]
     Route: 048
  5. OMEPRAZOLE [Concomitant]
     Route: 065
  6. BETAPRED [Concomitant]
     Route: 048
  7. PRIMOLUT-NOR [Concomitant]
     Route: 048
  8. PRIMPERAN INJ [Concomitant]
     Route: 054
  9. COMBIVENT [Concomitant]
     Route: 055
  10. OXYCONTIN [Concomitant]
     Route: 048

REACTIONS (1)
  - ACUTE MYELOID LEUKAEMIA [None]
